FAERS Safety Report 7151139-1 (Version None)
Quarter: 2010Q4

REPORT INFORMATION
  Report Type: 
  Country: None (occurrence: None)
  Receive Date: 20101210
  Receipt Date: 20101202
  Transmission Date: 20110411
  Serious: Yes (Hospitalization)
  Sender: FDA-Public Use
  Company Number: JP-BRISTOL-MYERS SQUIBB COMPANY-15427487

PATIENT
  Age: 70 Year
  Sex: Male
  Weight: 49 kg

DRUGS (3)
  1. CETUXIMAB [Suspect]
     Indication: GASTROOESOPHAGEAL CANCER
     Dosage: STRENGTH:5MG/ML;RECENT INF-26NOV2010, 23RD INF; INTERRUPTED ON 02DEC2010, 181DAYS;
     Route: 042
     Dates: start: 20100604
  2. CISPLATIN [Suspect]
     Indication: GASTROOESOPHAGEAL CANCER
     Dosage: RECENT INF-29OCT2010
     Route: 042
     Dates: start: 20100604
  3. XELODA [Suspect]
     Indication: GASTROOESOPHAGEAL CANCER
     Dosage: ON DAY 1-15; RECENT DOSE(INTERRUPTED)-02DEC2010; 181DAYS
     Route: 048
     Dates: start: 20100604

REACTIONS (1)
  - DECREASED APPETITE [None]
